FAERS Safety Report 7119129-2 (Version None)
Quarter: 2010Q4

REPORT INFORMATION
  Report Type: 
  Country: None (occurrence: None)
  Receive Date: 20101123
  Receipt Date: 20100622
  Transmission Date: 20110411
  Serious: No
  Sender: FDA-Public Use
  Company Number: US-MYLANLABS-2009S1020395

PATIENT
  Age: 74 Year
  Sex: Female
  Weight: 61.24 kg

DRUGS (4)
  1. AMLODIPINE BESYLATE [Suspect]
     Indication: HYPERTENSION
     Route: 048
  2. LEVOTHYROXINE SODIUM [Concomitant]
     Indication: HYPOTHYROIDISM
     Dates: start: 19850101
  3. ESTROPIPATE [Concomitant]
     Indication: HORMONE REPLACEMENT THERAPY
     Dates: start: 19770101
  4. BENADRYL [Concomitant]
     Indication: SINUS CONGESTION
     Dates: start: 20050101

REACTIONS (7)
  - APHONIA [None]
  - COUGH [None]
  - DYSPHONIA [None]
  - FOREIGN BODY [None]
  - INCREASED UPPER AIRWAY SECRETION [None]
  - OROPHARYNGEAL PAIN [None]
  - THROAT IRRITATION [None]
